FAERS Safety Report 5948317-3 (Version None)
Quarter: 2008Q4

REPORT INFORMATION
  Report Type: 
  Country: None (occurrence: None)
  Receive Date: 20081110
  Receipt Date: 20081110
  Transmission Date: 20090506
  Serious: Yes (Other)
  Sender: FDA-Public Use
  Company Number: None

PATIENT
  Age: 11 Year
  Sex: Female
  Weight: 44.9061 kg

DRUGS (1)
  1. STRATTERA [Suspect]
     Indication: ATTENTION DEFICIT/HYPERACTIVITY DISORDER
     Dosage: 60MG 1X/DAY PO
     Route: 048
     Dates: start: 20080810, end: 20081008

REACTIONS (3)
  - DERMATILLOMANIA [None]
  - MIDDLE INSOMNIA [None]
  - SCAR [None]
